FAERS Safety Report 9474039 (Version 1)
Quarter: 2013Q3

REPORT INFORMATION
  Report Type: Spontaneous
  Country: US (occurrence: US)
  Receive Date: 20130823
  Receipt Date: 20130823
  Transmission Date: 20140515
  Serious: No
  Sender: FDA-Public Use
  Company Number: PHEH2013US017784

PATIENT
  Sex: Male

DRUGS (4)
  1. TASIGNA [Suspect]
     Indication: LEUKAEMIA
     Dosage: 150 MG, BID
     Route: 048
  2. DOXAZOSIN MESYLATE [Concomitant]
     Dosage: 1 MG, QD
  3. WARFARIN [Concomitant]
     Dosage: 5 MG, BID
  4. METOPROLOL TARTRATE [Concomitant]
     Dosage: 50 MG, BID

REACTIONS (1)
  - Fatigue [Unknown]
